FAERS Safety Report 5503834-5 (Version None)
Quarter: 2007Q4

REPORT INFORMATION
  Report Type: 
  Country: None (occurrence: None)
  Receive Date: 20071101
  Receipt Date: 20071025
  Transmission Date: 20080405
  Serious: Yes (Hospitalization)
  Sender: FDA-Public Use
  Company Number: JP-BAYER-200710784BYL

PATIENT
  Age: 53 Year
  Sex: Male

DRUGS (6)
  1. ASPIRIN [Suspect]
     Indication: STENT PLACEMENT
     Dosage: TOTAL DAILY DOSE: 100 MG  UNIT DOSE: 100 MG
     Route: 048
     Dates: start: 20070922, end: 20071018
  2. MINOCYCLINE HCL [Suspect]
     Route: 065
  3. TICLOPIDINE HCL [Suspect]
     Route: 048
  4. OMEPRAZOLE [Suspect]
     Route: 065
  5. CARBENIN [Suspect]
     Route: 065
  6. MEXITIL [Suspect]
     Route: 065

REACTIONS (2)
  - SKIN EXFOLIATION [None]
  - STEVENS-JOHNSON SYNDROME [None]
